FAERS Safety Report 9983361 (Version 4)
Quarter: 2014Q2

REPORT INFORMATION
  Report Type: Spontaneous
  Country: GB (occurrence: GB)
  Receive Date: 20140307
  Receipt Date: 20140418
  Transmission Date: 20141212
  Serious: Yes (Other)
  Sender: FDA-Public Use
  Company Number: GB-009507513-1403GBR002433

PATIENT
  Age: 64 Year
  Sex: Male

DRUGS (3)
  1. NEOCLARITYN [Suspect]
     Indication: NASAL DISCOMFORT
     Dosage: 5 MG, QD
     Route: 048
     Dates: start: 2007, end: 20140304
  2. NEOCLARITYN [Suspect]
     Indication: THROAT IRRITATION
     Dosage: 10 MG (2 TABLETS), QPM
     Route: 048
     Dates: start: 20140228
  3. NEOCLARITYN [Suspect]
     Indication: RHINITIS

REACTIONS (8)
  - Coronary arterial stent insertion [Recovered/Resolved]
  - Epistaxis [Recovered/Resolved]
  - Burning sensation mucosal [Recovered/Resolved]
  - Nasal discomfort [Recovered/Resolved]
  - Suicidal ideation [Recovered/Resolved]
  - Therapeutic response decreased [Recovered/Resolved]
  - Emotional disorder [Recovered/Resolved]
  - Overdose [Unknown]
